FAERS Safety Report 8736903 (Version 3)
Quarter: 2012Q4

REPORT INFORMATION
  Report Type: Spontaneous
  Country: US (occurrence: None)
  Receive Date: 20120805
  Receipt Date: 20121022
  Transmission Date: 20130627
  Serious: Yes (Other)
  Sender: FDA-Public Use
  Company Number: AUR-APL-2012-03232

PATIENT
  Age: 49 Year
  Sex: Female
  Weight: 81.63 kg

DRUGS (10)
  1. VENLAFAXINE [Suspect]
     Indication: DEPRESSION
     Dosage: (400 MG, 1 D)
     Dates: end: 201207
  2. PRISTIQ EXTENDED RELEASE [Suspect]
     Indication: DEPRESSION
     Dosage: (100 mg, 1 D)
     Dates: start: 201208
  3. ABILIFY [Suspect]
     Indication: DEPRESSION
     Dosage: (5 mg, 1 D)
     Dates: end: 201207
  4. METFORMIN HYDROCHLORIDE [Concomitant]
  5. LEVOTHYROXINE SODIUM [Concomitant]
  6. LISINOPRIL [Concomitant]
  7. PHENERGAN (PHENERGAN) [Concomitant]
  8. BUTALBITAL [Concomitant]
  9. ZANAFLEX (TIZANIDINE HYDROCHLORIDE) [Concomitant]
  10. HYDROCHLOROTHIAZIDE (HYDROCHLOROTHIAZIDE) [Concomitant]

REACTIONS (7)
  - Expired drug administered [None]
  - Depression [None]
  - Condition aggravated [None]
  - Anxiety [None]
  - Migraine [None]
  - Stress [None]
  - Nausea [None]
